FAERS Safety Report 15279836 (Version 1)
Quarter: 2018Q4

REPORT INFORMATION
  Report Type: Report from Study
  Country: US (occurrence: US)
  Receive Date: 20180815
  Receipt Date: 20180815
  Transmission Date: 20190204
  Serious: Yes (Hospitalization)
  Sender: FDA-Public Use
  Company Number: US-PFIZER INC-2018258574

PATIENT
  Age: 58 Year
  Sex: Male
  Weight: 107 kg

DRUGS (4)
  1. LEPTINORM [Interacting]
     Active Substance: RISPERIDONE
     Indication: ANXIETY
     Dosage: UNK
  2. SYNTHROID [Concomitant]
     Active Substance: LEVOTHYROXINE SODIUM
     Indication: HYPOTHYROIDISM
     Dosage: UNK
  3. HUMIRA [Interacting]
     Active Substance: ADALIMUMAB
     Indication: ANKYLOSING SPONDYLITIS
     Dosage: 40 MG, CYCLIC, 1 IN 2 WEEK
     Route: 058
     Dates: start: 20180213, end: 201804
  4. CELEBREX [Suspect]
     Active Substance: CELECOXIB
     Indication: ANKYLOSING SPONDYLITIS
     Dosage: UNK
     Dates: start: 2018, end: 2018

REACTIONS (4)
  - Allergic oedema [Recovered/Resolved]
  - Drug interaction [Recovered/Resolved]
  - Dermatitis allergic [Recovered/Resolved]
  - Drug ineffective [Unknown]

NARRATIVE: CASE EVENT DATE: 20180509
